FAERS Safety Report 11492460 (Version 9)
Quarter: 2022Q2

REPORT INFORMATION
  Report Type: Spontaneous
  Country: US (occurrence: US)
  Receive Date: 20150910
  Receipt Date: 20220524
  Transmission Date: 20220720
  Serious: Yes (Hospitalization, Other)
  Sender: FDA-Public Use
  Company Number: US-BIOMARINAP-US-2015-107333

PATIENT
  Age: 15 Year
  Sex: Male

DRUGS (3)
  1. LARONIDASE [Suspect]
     Active Substance: LARONIDASE
     Indication: Mucopolysaccharidosis I
     Dosage: 29 MILLIGRAM, QW
     Route: 041
  2. LARONIDASE [Suspect]
     Active Substance: LARONIDASE
     Dosage: 29 MG, QW
     Route: 041
     Dates: start: 20110824
  3. LARONIDASE [Suspect]
     Active Substance: LARONIDASE
     Dosage: 31.9 MG, QW
     Route: 041
     Dates: start: 20110207

REACTIONS (9)
  - Near drowning [Recovering/Resolving]
  - Spinal cord compression [Unknown]
  - Anal incontinence [Recovered/Resolved]
  - Poor venous access [Not Recovered/Not Resolved]
  - Pain [Not Recovered/Not Resolved]
  - Fall [Not Recovered/Not Resolved]
  - Infusion site pain [Unknown]
  - Product dose omission issue [Unknown]
  - Inappropriate schedule of product administration [Unknown]

NARRATIVE: CASE EVENT DATE: 20150830
